FAERS Safety Report 13683724 (Version 2)
Quarter: 2018Q2

REPORT INFORMATION
  Report Type: Spontaneous
  Country: US (occurrence: US)
  Receive Date: 20170623
  Receipt Date: 20180622
  Transmission Date: 20180711
  Serious: No
  Sender: FDA-Public Use
  Company Number: US-ASTELLAS-2016US047449

PATIENT
  Sex: Female

DRUGS (1)
  1. VESICARE [Suspect]
     Active Substance: SOLIFENACIN SUCCINATE
     Indication: CYSTITIS INTERSTITIAL
     Dosage: UNK, UNKNOWN FREQ.
     Route: 048
     Dates: start: 2007

REACTIONS (4)
  - Malaise [Unknown]
  - Dry mouth [Unknown]
  - Off label use [Unknown]
  - Dry eye [Unknown]
